FAERS Safety Report 9153884 (Version 1)
Quarter: 2013Q1

REPORT INFORMATION
  Report Type: Spontaneous
  Country: GB (occurrence: None)
  Receive Date: 20130205
  Receipt Date: 20130205
  Transmission Date: 20140127
  Serious: Yes (Other)
  Sender: FDA-Public Use
  Company Number: AXC-2013-000031

PATIENT
  Age: 43 Year
  Sex: Female

DRUGS (1)
  1. NITROGLYCERIN (NITROGLYCERIN) RECTAL OINTMENT [Suspect]
     Indication: PRODUCT USED FOR UNKNOWN INDICATION
     Route: 054

REACTIONS (3)
  - Paraesthesia oral [None]
  - Syncope [None]
  - Dizziness [None]
